FAERS Safety Report 10778153 (Version 4)
Quarter: 2015Q2

REPORT INFORMATION
  Report Type: Report from Study
  Country: US (occurrence: US)
  Receive Date: 20150209
  Receipt Date: 20150403
  Transmission Date: 20150821
  Serious: Yes (Death, Hospitalization, Other)
  Sender: FDA-Public Use
  Company Number: GXBR2015US000725

PATIENT
  Age: 55 Year
  Sex: Female

DRUGS (2)
  1. ENOXAPARIN SODIUM. [Suspect]
     Active Substance: ENOXAPARIN SODIUM
     Dosage: 150 MG, QD
     Route: 058
  2. ENOXAPARIN SODIUM. [Suspect]
     Active Substance: ENOXAPARIN SODIUM
     Indication: PRODUCT USED FOR UNKNOWN INDICATION
     Dosage: 80 MG, Q12H
     Route: 058

REACTIONS (4)
  - Malaise [Unknown]
  - Death [Fatal]
  - Cancer pain [Unknown]
  - Thrombosis [Unknown]

NARRATIVE: CASE EVENT DATE: 20150228
